FAERS Safety Report 7091014-4 (Version None)
Quarter: 2010Q4

REPORT INFORMATION
  Report Type: 
  Country: None (occurrence: None)
  Receive Date: 20101109
  Receipt Date: 20101102
  Transmission Date: 20110411
  Serious: Yes (Death, Other)
  Sender: FDA-Public Use
  Company Number: US-ELI_LILLY_AND_COMPANY-US201011001008

PATIENT

DRUGS (5)
  1. PEMETREXED [Suspect]
     Indication: NON-SMALL CELL LUNG CANCER
     Dosage: 500 MG/M2, 3/W
     Route: 042
  2. MATUZUMAB [Concomitant]
     Indication: NON-SMALL CELL LUNG CANCER
     Dosage: 1600 MG, 3/W
     Route: 042
  3. DEXAMETHASONE [Concomitant]
     Dosage: 4 MG, 2/D
     Route: 048
  4. VITAMIN B-12 [Concomitant]
     Dosage: 1000 UG, OTHER
     Route: 030
  5. FOLIC ACID [Concomitant]
     Dosage: 1350 (350-1000) UG, DAILY (1/D)
     Route: 048

REACTIONS (2)
  - PNEUMONIA [None]
  - RESPIRATORY FAILURE [None]
